FAERS Safety Report 5223738-5 (Version None)
Quarter: 2007Q1

REPORT INFORMATION
  Report Type: 
  Country: None (occurrence: None)
  Receive Date: 20070130
  Receipt Date: 20070117
  Transmission Date: 20070707
  Serious: Yes (Hospitalization, Other)
  Sender: FDA-Public Use
  Company Number: PHEH2006US14442

PATIENT
  Age: 39 Year
  Sex: Female
  Weight: 66.213 kg

DRUGS (5)
  1. METHERGINE [Suspect]
     Indication: POSTPARTUM HAEMORRHAGE
     Dosage: 0.2 MG, ONCE/SINGLE
     Route: 030
     Dates: start: 20061114
  2. CYTOTEC [Concomitant]
     Indication: VAGINAL HAEMORRHAGE
     Dosage: 600 MCG ONCE
     Route: 067
     Dates: start: 20061114
  3. OXYTOCIN [Concomitant]
     Dosage: UNK, UNK
     Route: 042
     Dates: start: 20061114
  4. PENICILLIN G [Concomitant]
     Indication: PROPHYLAXIS
     Dosage: 5 MILLION UNITS X 1
     Route: 042
     Dates: start: 20061114
  5. PENICILLIN G [Concomitant]
     Dosage: 2.5 MILLTION UNITS X 1
     Route: 048
     Dates: start: 20061114

REACTIONS (10)
  - BLOOD PRESSURE IMMEASURABLE [None]
  - BODY TEMPERATURE DECREASED [None]
  - BODY TEMPERATURE INCREASED [None]
  - COMPLICATION OF DELIVERY [None]
  - CYANOSIS [None]
  - DYSPNOEA [None]
  - MENTAL IMPAIRMENT [None]
  - OXYGEN SATURATION DECREASED [None]
  - PALLOR [None]
  - TREMOR [None]
